FAERS Safety Report 14235838 (Version 1)
Quarter: 2017Q4

REPORT INFORMATION
  Report Type: Report from Study
  Country: None (occurrence: CA)
  Receive Date: 20171129
  Receipt Date: 20171129
  Transmission Date: 20180321
  Serious: Yes (Hospitalization, Other)
  Sender: FDA-Public Use
  Company Number: CA-ABBVIE-17K-028-2174484-00

PATIENT
  Age: 37 Year
  Sex: Female

DRUGS (1)
  1. HUMIRA [Suspect]
     Active Substance: ADALIMUMAB
     Indication: ANKYLOSING SPONDYLITIS
     Route: 058
     Dates: start: 20121221, end: 2017

REACTIONS (8)
  - Pyrexia [Unknown]
  - Nausea [Unknown]
  - Chills [Unknown]
  - Gastrointestinal infection [Unknown]
  - Intestinal obstruction [Unknown]
  - Heart rate increased [Unknown]
  - White blood cell count increased [Unknown]
  - Gastrointestinal inflammation [Unknown]

NARRATIVE: CASE EVENT DATE: 201711
